FAERS Safety Report 10751301 (Version 2)
Quarter: 2015Q1

REPORT INFORMATION
  Report Type: Spontaneous
  Country: US (occurrence: None)
  Receive Date: 20150129
  Receipt Date: 20150213
  Transmission Date: 20150721
  Serious: Yes (Hospitalization)
  Sender: FDA-Public Use
  Company Number: 2015CT000019

PATIENT
  Age: 44 Year
  Sex: Female
  Weight: 72.58 kg

DRUGS (5)
  1. DIAZEPAM. [Concomitant]
     Active Substance: DIAZEPAM
  2. SPIRONOLACTONE. [Concomitant]
     Active Substance: SPIRONOLACTONE
  3. KORLYM [Suspect]
     Active Substance: MIFEPRISTONE
     Indication: CUSHING^S SYNDROME
     Route: 048
     Dates: start: 20141223, end: 20150101
  4. METOPROLOL [Concomitant]
     Active Substance: METOPROLOL
  5. TRAMADOL [Concomitant]
     Active Substance: TRAMADOL

REACTIONS (13)
  - Chest pain [None]
  - Swelling face [None]
  - Depressed level of consciousness [None]
  - Myocardial necrosis marker increased [None]
  - Nausea [None]
  - Headache [None]
  - Hypertension [None]
  - Peripheral swelling [None]
  - Blood aldosterone increased [None]
  - Rash erythematous [None]
  - Inappropriate schedule of drug administration [None]
  - Rash [None]
  - Dizziness [None]

NARRATIVE: CASE EVENT DATE: 20150109
